FAERS Safety Report 4895037-2 (Version None)
Quarter: 2006Q1

REPORT INFORMATION
  Report Type: 
  Country: None (occurrence: None)
  Receive Date: 20060130
  Receipt Date: 20020814
  Transmission Date: 20060701
  Serious: Yes (Hospitalization)
  Sender: FDA-Public Use
  Company Number: US-BRISTOL-MYERS SQUIBB COMPANY-13172028

PATIENT

DRUGS (1)
  1. METFORMIN HCL [Suspect]

REACTIONS (1)
  - LACTIC ACIDOSIS [None]
